FAERS Safety Report 7164616-4 (Version None)
Quarter: 2010Q4

REPORT INFORMATION
  Report Type: 
  Country: None (occurrence: None)
  Receive Date: 20101215
  Receipt Date: 20091124
  Transmission Date: 20110411
  Serious: No
  Sender: FDA-Public Use
  Company Number: US-MYLANLABS-2009S1020371

PATIENT
  Age: 76 Year
  Sex: Female

DRUGS (1)
  1. OXYBUTYNIN HYDROCHLORIDE [Suspect]
     Dates: start: 20050101, end: 20050101

REACTIONS (2)
  - DRUG INTOLERANCE [None]
  - VISION BLURRED [None]
